FAERS Safety Report 13504794 (Version 1)
Quarter: 2017Q2

REPORT INFORMATION
  Report Type: Spontaneous
  Country: US (occurrence: US)
  Receive Date: 20170502
  Receipt Date: 20170502
  Transmission Date: 20170830
  Serious: No
  Sender: FDA-Public Use
  Company Number: US-IMPAX LABORATORIES, INC-2017-IPXL-00258

PATIENT
  Age: 89 Year
  Sex: Female
  Weight: 61 kg

DRUGS (6)
  1. MIDODRINE [Concomitant]
     Active Substance: MIDODRINE
     Indication: HYPERTENSION
     Dosage: 2.5 MG, 3 /DAY
     Route: 065
  2. PAXIL [Concomitant]
     Active Substance: PAROXETINE HYDROCHLORIDE
     Indication: PRODUCT USED FOR UNKNOWN INDICATION
     Dosage: 20 MG, 1 /DAY
     Route: 065
  3. RYTARY [Suspect]
     Active Substance: CARBIDOPA\LEVODOPA
     Dosage: 36.25/145 MG FOUR CAPSULES, 5 TIMES A DAY
     Route: 048
     Dates: start: 20170124
  4. RYTARY [Suspect]
     Active Substance: CARBIDOPA\LEVODOPA
     Dosage: 36.25/145 MG FOUR CAPSULES, 4 TIMES A DAY
     Route: 048
  5. PRESERVISION AREDS 2 [Concomitant]
     Indication: GLAUCOMA
     Dosage: UNK, 2 /DAY
     Route: 050
  6. RYTARY [Suspect]
     Active Substance: CARBIDOPA\LEVODOPA
     Indication: PARKINSON^S DISEASE
     Dosage: 36.25/145 MG FOUR CAPSULES, 4 TIMES A DAY (EVERY 4 HOURS)
     Route: 048
     Dates: start: 20170124

REACTIONS (1)
  - Drug effect variable [Unknown]
